FAERS Safety Report 23893955 (Version 2)
Quarter: 2024Q2

REPORT INFORMATION
  Report Type: Spontaneous
  Country: HU (occurrence: HU)
  Receive Date: 20240524
  Receipt Date: 20240628
  Transmission Date: 20240716
  Serious: Yes (Hospitalization)
  Sender: FDA-Public Use
  Company Number: HU-UCBSA-2024025016

PATIENT
  Age: 14 Year
  Sex: Male
  Weight: 44 kg

DRUGS (3)
  1. FENFLURAMINE HYDROCHLORIDE [Suspect]
     Active Substance: FENFLURAMINE HYDROCHLORIDE
     Indication: Lennox-Gastaut syndrome
     Dosage: 3.3 MILLIGRAM, 2X/DAY (BID) (2 ? 1.5 ML (3 ML = 6.6 MG))
     Dates: start: 20240503, end: 20240509
  2. COSIM [Concomitant]
     Indication: Lennox-Gastaut syndrome
     Dosage: 150 MILLIGRAM, 2X/DAY (BID)
     Route: 048
     Dates: start: 2021
  3. INOVELON [Concomitant]
     Active Substance: RUFINAMIDE
     Indication: Lennox-Gastaut syndrome
     Dosage: 400 MILLIGRAM, 2X/DAY (BID)
     Dates: start: 2022

REACTIONS (1)
  - Drug eruption [Recovered/Resolved]

NARRATIVE: CASE EVENT DATE: 20240508
